FAERS Safety Report 6371989-9 (Version None)
Quarter: 2009Q3

REPORT INFORMATION
  Report Type: 
  Country: None (occurrence: None)
  Receive Date: 20090917
  Receipt Date: 20090904
  Transmission Date: 20100115
  Serious: Yes (Disabling, Other)
  Sender: FDA-Public Use
  Company Number: ADR18102009

PATIENT
  Age: 73 Year
  Sex: Female

DRUGS (7)
  1. CITALOPRAM [Suspect]
     Dosage: 20 MG/DAY, ORAL
     Route: 048
     Dates: start: 20061017, end: 20070402
  2. ADCAL [Concomitant]
  3. AMLODIPINE [Concomitant]
  4. BENDROFLUAZIDE [Concomitant]
  5. DOTHIEPIN HYDROCHLORIDE [Concomitant]
  6. LEVOTHYROXINE SODIUM [Concomitant]
  7. OMEPRAZOLE [Concomitant]

REACTIONS (1)
  - PARKINSONISM [None]
